FAERS Safety Report 8386875-2 (Version None)
Quarter: 2012Q2

REPORT INFORMATION
  Report Type: 
  Country: None (occurrence: None)
  Receive Date: 20120523
  Receipt Date: 20120514
  Transmission Date: 20120825
  Serious: Yes (Hospitalization)
  Sender: FDA-Public Use
  Company Number: 134093

PATIENT
  Age: 8 Year
  Sex: Male

DRUGS (1)
  1. RIFAMPIN [Suspect]
     Indication: TUBERCULOSIS

REACTIONS (5)
  - PARADOXICAL DRUG REACTION [None]
  - NUCLEAR MAGNETIC RESONANCE IMAGING BRAIN ABNORMAL [None]
  - CONDITION AGGRAVATED [None]
  - TUBERCULOSIS OF CENTRAL NERVOUS SYSTEM [None]
  - COMA [None]
